FAERS Safety Report 13558910 (Version 4)
Quarter: 2017Q3

REPORT INFORMATION
  Report Type: Spontaneous
  Country: US (occurrence: US)
  Receive Date: 20170518
  Receipt Date: 20170707
  Transmission Date: 20171127
  Serious: Yes (Life-Threatening, Other)
  Sender: FDA-Public Use
  Company Number: US-SUN PHARMACEUTICAL INDUSTRIES LTD-2017US-140774

PATIENT
  Age: 57 Year
  Sex: Female

DRUGS (6)
  1. MORPHINE [Suspect]
     Active Substance: MORPHINE
     Indication: COLITIS
     Dosage: UNK
     Route: 065
  2. METRONIDAZOLE. [Suspect]
     Active Substance: METRONIDAZOLE
     Indication: COLITIS
     Route: 065
  3. METRONIDAZOLE. [Suspect]
     Active Substance: METRONIDAZOLE
     Indication: ABDOMINAL TENDERNESS
  4. CEFOXITIN [Suspect]
     Active Substance: CEFOXITIN SODIUM
     Indication: COLITIS
     Dosage: UNK
     Route: 065
  5. CEFOXITIN [Suspect]
     Active Substance: CEFOXITIN SODIUM
     Indication: ABDOMINAL TENDERNESS
  6. MORPHINE [Suspect]
     Active Substance: MORPHINE
     Indication: ABDOMINAL TENDERNESS

REACTIONS (3)
  - Systemic mastocytosis [Unknown]
  - Cardiac arrest [Recovering/Resolving]
  - Anaphylactic reaction [Unknown]
